FAERS Safety Report 16393612 (Version 1)
Quarter: 2019Q2

REPORT INFORMATION
  Report Type: Spontaneous
  Country: US (occurrence: US)
  Receive Date: 20190605
  Receipt Date: 20190605
  Transmission Date: 20190711
  Serious: No
  Sender: FDA-Public Use
  Company Number: US-PFIZER INC-2019056736

PATIENT
  Age: 49 Year
  Sex: Female
  Weight: 68 kg

DRUGS (1)
  1. CHANTIX [Suspect]
     Active Substance: VARENICLINE TARTRATE
     Indication: SMOKING CESSATION THERAPY
     Dosage: UNK (0.5 MG FOR 3 DAYS THEN 0.5 MG IN MORNING + NIGHT, THEN 1 TABLET IN MORNING + 1 AT NIGHT)
     Dates: start: 201901

REACTIONS (2)
  - Nausea [Unknown]
  - Weight increased [Unknown]
